FAERS Safety Report 8573858-2 (Version None)
Quarter: 2012Q3

REPORT INFORMATION
  Report Type: 
  Country: None (occurrence: None)
  Receive Date: 20120806
  Receipt Date: 20111128
  Transmission Date: 20120928
  Serious: No
  Sender: FDA-Public Use
  Company Number: US-GLAXOSMITHKLINE-A0955270A

PATIENT
  Age: 81 Year
  Sex: Female

DRUGS (4)
  1. FLUTICASONE PROPIONATE [Suspect]
     Indication: NASOPHARYNGITIS
     Dosage: 2PUFF TWICE PER DAY
     Route: 055
     Dates: start: 20111102
  2. BLOOD PRESSURE MEDICATION [Concomitant]
  3. LOPRESSOR [Concomitant]
  4. THYROID MEDICATION [Concomitant]
     Indication: BLOOD CALCIUM DECREASED

REACTIONS (6)
  - PARAESTHESIA [None]
  - SENSATION OF HEAVINESS [None]
  - HYPOAESTHESIA [None]
  - PAIN [None]
  - NECK PAIN [None]
  - BONE PAIN [None]
